FAERS Safety Report 9085792 (Version 1)
Quarter: 2013Q1

REPORT INFORMATION
  Report Type: Report from Study
  Country: US (occurrence: US)
  Receive Date: 20130131
  Receipt Date: 20130131
  Transmission Date: 20140127
  Serious: No
  Sender: FDA-Public Use
  Company Number: US-ABBOTT-12P-163-1004143-00

PATIENT
  Sex: Female

DRUGS (8)
  1. HUMIRA [Suspect]
     Indication: RHEUMATOID ARTHRITIS
     Dates: end: 2012
  2. HUMIRA [Suspect]
     Dates: start: 2012
  3. SULFASALAZINE [Concomitant]
     Indication: RHEUMATOID ARTHRITIS
  4. METHOTREXATE [Concomitant]
     Indication: RHEUMATOID ARTHRITIS
  5. FOLIC ACID [Concomitant]
     Indication: VITAMIN SUPPLEMENTATION
  6. TRAMADOL [Concomitant]
     Indication: RHEUMATOID ARTHRITIS
  7. ATENOLOL [Concomitant]
     Indication: HYPERTENSION
  8. HCTZ [Concomitant]
     Indication: HYPERTENSION

REACTIONS (1)
  - Inappropriate schedule of drug administration [Recovered/Resolved]
